FAERS Safety Report 23731922 (Version 1)
Quarter: 2024Q2

REPORT INFORMATION
  Report Type: Spontaneous
  Country: US (occurrence: None)
  Receive Date: 20240410
  Receipt Date: 20240410
  Transmission Date: 20240716
  Serious: No
  Sender: FDA-Public Use
  Company Number: None

PATIENT
  Age: 30 Year
  Sex: Female
  Weight: 54 kg

DRUGS (2)
  1. EMGALITY [Suspect]
     Active Substance: GALCANEZUMAB-GNLM
     Indication: Migraine
     Dosage: OTHER QUANTITY : 1 INJECTION(S);?OTHER FREQUENCY : MONTHLY;?
     Route: 058
     Dates: start: 20240130, end: 20240401
  2. KYLEENA [Concomitant]
     Active Substance: LEVONORGESTREL

REACTIONS (7)
  - Menstrual disorder [None]
  - Arthralgia [None]
  - Gastrointestinal disorder [None]
  - Back pain [None]
  - Constipation [None]
  - Muscle spasms [None]
  - Back pain [None]
